FAERS Safety Report 4511092-3 (Version None)
Quarter: 2004Q4

REPORT INFORMATION
  Report Type: 
  Country: None (occurrence: None)
  Receive Date: 20041015
  Receipt Date: 20040206
  Transmission Date: 20050328
  Serious: Yes (Other)
  Sender: FDA-Public Use
  Company Number: 2004008326

PATIENT
  Sex: Female
  Weight: 68.0396 kg

DRUGS (1)
  1. NEURONTIN [Suspect]
     Indication: SURGERY
     Dosage: 1600 MG (TID), ORAL
     Route: 048
     Dates: start: 20020101, end: 20021001

REACTIONS (7)
  - AGGRESSION [None]
  - DECREASED INTEREST [None]
  - DEPRESSION [None]
  - MOOD SWINGS [None]
  - PAIN [None]
  - SUICIDAL IDEATION [None]
  - UNEVALUABLE EVENT [None]
